FAERS Safety Report 11236470 (Version 1)
Quarter: 2015Q3

REPORT INFORMATION
  Report Type: Report from Study
  Country: JP (occurrence: JP)
  Receive Date: 20150702
  Receipt Date: 20150702
  Transmission Date: 20151125
  Serious: Yes (Hospitalization)
  Sender: FDA-Public Use
  Company Number: JP-009507513-1412JPN003342

PATIENT
  Age: 46 Year
  Sex: Male

DRUGS (11)
  1. ISENTRESS [Suspect]
     Active Substance: RALTEGRAVIR POTASSIUM
     Indication: ACQUIRED IMMUNODEFICIENCY SYNDROME
     Dosage: DIVIDED DOSE FREQUENCY UNKNOWN, 800 MG, QD
     Route: 048
     Dates: start: 20120627, end: 20130904
  2. LENDORMIN D [Concomitant]
     Active Substance: BROTIZOLAM
     Indication: INSOMNIA
     Dosage: 0.25 MG, QD
     Route: 048
  3. ISENTRESS [Suspect]
     Active Substance: RALTEGRAVIR POTASSIUM
     Dosage: DIVIDED DOSE FREQUENCY UNKNOWN, 800 MG, QD
     Route: 048
     Dates: start: 20140207
  4. MYSLEE [Concomitant]
     Active Substance: ZOLPIDEM TARTRATE
     Indication: INSOMNIA
     Dosage: FORMULATION POR, 10 MG, QD
     Route: 048
  5. MUCOSTA [Concomitant]
     Active Substance: REBAMIPIDE
     Indication: CHRONIC GASTRITIS
     Dosage: 100 MG, TID
     Route: 065
     Dates: end: 20130912
  6. DIFLUCAN [Concomitant]
     Active Substance: FLUCONAZOLE
     Indication: ORAL CANDIDIASIS
     Dosage: 100 MG, QD
     Route: 065
     Dates: end: 20130906
  7. SOLACET F [Concomitant]
     Indication: DIZZINESS
     Dosage: 500 ML, QD
     Route: 051
     Dates: start: 20130816, end: 20130816
  8. CELESTAMINE [Concomitant]
     Active Substance: BETAMETHASONE\DEXCHLORPHENIRAMINE MALEATE
     Indication: DERMATITIS ATOPIC
     Dosage: 1 TABLET, QD,
     Route: 048
  9. SINGULAIR [Concomitant]
     Active Substance: MONTELUKAST SODIUM
     Indication: ASTHMA
     Dosage: FORMULATION POR, 10 MG, QD
     Route: 048
  10. COLONEL [Concomitant]
     Active Substance: CALCIUM POLYCARBOPHIL
     Indication: DIARRHOEA
     Dosage: FORMULATION POR, 500 MG, BID
     Route: 048
     Dates: end: 20130911
  11. TRUVADA [Concomitant]
     Active Substance: EMTRICITABINE\TENOFOVIR DISOPROXIL FUMARATE
     Indication: ACQUIRED IMMUNODEFICIENCY SYNDROME
     Dosage: DIVIDED DOSE FREQUENCY UNKNOWN 1 TABLET, QD
     Route: 048
     Dates: start: 20120627, end: 20130904

REACTIONS (6)
  - Gastroenteritis [Recovered/Resolved]
  - Dizziness [Recovered/Resolved]
  - Hyperventilation [Unknown]
  - Hallucination [Not Recovered/Not Resolved]
  - Nasopharyngitis [Recovered/Resolved]
  - Panic attack [Not Recovered/Not Resolved]

NARRATIVE: CASE EVENT DATE: 20130816
